FAERS Safety Report 6807207-4 (Version None)
Quarter: 2010Q2

REPORT INFORMATION
  Report Type: 
  Country: None (occurrence: None)
  Receive Date: 20100628
  Receipt Date: 20100628
  Transmission Date: 20101027
  Serious: Yes (Life-Threatening)
  Sender: FDA-Public Use
  Company Number: None

PATIENT
  Sex: Male

DRUGS (1)
  1. GADOLINIUM GADOPENTATE [Suspect]
     Indication: NUCLEAR MAGNETIC RESONANCE IMAGING
     Dosage: 30 ML ONCE IV ; ONE TIME ONLY
     Route: 042

REACTIONS (13)
  - ANAPHYLACTIC REACTION [None]
  - COLD SWEAT [None]
  - CYANOSIS [None]
  - DIZZINESS [None]
  - DRUG HYPERSENSITIVITY [None]
  - HYPOTENSION [None]
  - LARYNGEAL OEDEMA [None]
  - NASAL CONGESTION [None]
  - PRESYNCOPE [None]
  - RASH [None]
  - SKIN DISCOLOURATION [None]
  - SYNCOPE [None]
  - TREMOR [None]
